FAERS Safety Report 6558838-0 (Version None)
Quarter: 2010Q1

REPORT INFORMATION
  Report Type: 
  Country: None (occurrence: None)
  Receive Date: 20100129
  Receipt Date: 20100126
  Transmission Date: 20100710
  Serious: Yes (Life-Threatening, Other)
  Sender: FDA-Public Use
  Company Number: PHHY2009CA40518

PATIENT
  Sex: Female

DRUGS (3)
  1. CLOZARIL [Suspect]
     Indication: SCHIZOPHRENIA
     Dosage: 187.5 MG/DAY
     Dates: start: 20031208
  2. CLOZARIL [Suspect]
     Dosage: 18.75 MG DAILY
     Route: 048
     Dates: start: 20050209, end: 20090923
  3. ARIPIPRAZOLE [Concomitant]
     Dosage: 30 MG/DAY

REACTIONS (5)
  - GRANULOCYTE COUNT DECREASED [None]
  - HEPATITIS C [None]
  - LEUKAEMIA [None]
  - LYMPHOCYTE COUNT DECREASED [None]
  - NEUTROPHIL COUNT DECREASED [None]
